FAERS Safety Report 21974750 (Version 1)
Quarter: 2023Q1

REPORT INFORMATION
  Report Type: Spontaneous
  Country: US (occurrence: None)
  Receive Date: 20230208
  Receipt Date: 20230208
  Transmission Date: 20230417
  Serious: No
  Sender: FDA-Public Use
  Company Number: None

PATIENT
  Age: 68 Year
  Sex: Female
  Weight: 41.85 kg

DRUGS (8)
  1. VTAMA [Suspect]
     Active Substance: TAPINAROF
     Indication: Psoriasis
     Dosage: FREQUENCY : DAILY;?
     Route: 061
     Dates: start: 20221207, end: 20230128
  2. VTAMA [Suspect]
     Active Substance: TAPINAROF
     Indication: Dermatitis
  3. HUMIRA [Concomitant]
     Active Substance: ADALIMUMAB
  4. AMLODIPINE [Concomitant]
     Active Substance: AMLODIPINE BESYLATE
  5. BUDESONIDE [Concomitant]
     Active Substance: BUDESONIDE
  6. ALENDRONATE [Concomitant]
     Active Substance: ALENDRONATE SODIUM
  7. hyperbiotics [Concomitant]
  8. BAYER [Concomitant]
     Active Substance: ASPIRIN

REACTIONS (4)
  - Pruritus [None]
  - Erythema [None]
  - Rash papular [None]
  - Rash [None]

NARRATIVE: CASE EVENT DATE: 20230128
